FAERS Safety Report 4848289-9 (Version None)
Quarter: 2005Q4

REPORT INFORMATION
  Report Type: 
  Country: None (occurrence: None)
  Receive Date: 20051206
  Receipt Date: 20051130
  Transmission Date: 20060501
  Serious: Yes (Hospitalization)
  Sender: FDA-Public Use
  Company Number: PERC20050049

PATIENT
  Age: 59 Year
  Sex: Female

DRUGS (4)
  1. PERCOCET [Suspect]
     Indication: BACK PAIN
     Dosage: 1-2 TAB Q4H, PO
     Route: 048
     Dates: end: 20050101
  2. KLONOPIN [Suspect]
     Indication: ANXIETY
     Dosage: PRN, PO
     Route: 048
  3. BENADRYL [Suspect]
     Indication: PRURITUS
     Dosage: 2 TABS ONCE, PO
     Route: 048
     Dates: start: 20050101, end: 20050101
  4. CORTISONE ACETATE [Suspect]
     Indication: PRURITUS
     Dosage: TOP
     Route: 061
     Dates: start: 20050101

REACTIONS (4)
  - ACCIDENTAL EXPOSURE [None]
  - BURNING SENSATION [None]
  - INCORRECT DOSE ADMINISTERED [None]
  - PRURITUS [None]
